FAERS Safety Report 12369934 (Version 1)
Quarter: 2016Q2

REPORT INFORMATION
  Report Type: Spontaneous
  Country: US (occurrence: None)
  Receive Date: 20160516
  Receipt Date: 20160516
  Transmission Date: 20160815
  Serious: No
  Sender: FDA-Public Use
  Company Number: None

PATIENT
  Age: 12 Day
  Sex: Male
  Weight: 2.68 kg

DRUGS (2)
  1. MIFEPRISTONE [Suspect]
     Active Substance: MIFEPRISTONE
  2. MISOPROSTOL. [Suspect]
     Active Substance: MISOPROSTOL

REACTIONS (6)
  - Hypoglycaemia neonatal [None]
  - Hypothalamo-pituitary disorder [None]
  - Maternal drugs affecting foetus [None]
  - Premature baby [None]
  - Selective eating disorder [None]
  - Hypopituitarism [None]

NARRATIVE: CASE EVENT DATE: 20160510
